FAERS Safety Report 10417888 (Version 3)
Quarter: 2014Q4

REPORT INFORMATION
  Report Type: Spontaneous
  Country: JP (occurrence: JP)
  Receive Date: 20140829
  Receipt Date: 20141030
  Transmission Date: 20150528
  Serious: Yes (Hospitalization, Other)
  Sender: FDA-Public Use
  Company Number: JP-UCBSA-121944

PATIENT
  Age: 77 Year
  Sex: Male

DRUGS (16)
  1. DEPAS [Suspect]
     Active Substance: ETIZOLAM
     Indication: PRODUCT USED FOR UNKNOWN INDICATION
     Dosage: 0.5MG DAILY
     Route: 048
     Dates: start: 20121218, end: 20140414
  2. SENNA LEAF [Concomitant]
     Active Substance: SENNA LEAF
     Dosage: UNK
     Dates: start: 200511, end: 20140501
  3. LIDOCAINE. [Concomitant]
     Active Substance: LIDOCAINE
     Dosage: UNK
     Dates: start: 20060424, end: 20140501
  4. SODIUM RABEPRAZOLE [Concomitant]
     Active Substance: RABEPRAZOLE SODIUM
     Dosage: UNK
     Dates: start: 20121106, end: 20140501
  5. NITROGLYCERIN. [Concomitant]
     Active Substance: NITROGLYCERIN
     Dosage: UNK
     Dates: start: 20130514, end: 20140501
  6. KETOPROFEN. [Concomitant]
     Active Substance: KETOPROFEN
     Dosage: UNK
     Dates: start: 20131105, end: 20140414
  7. VERAPAMIL HYDROCHLORIDE. [Concomitant]
     Active Substance: VERAPAMIL HYDROCHLORIDE
     Dosage: UNK
     Dates: start: 20140114, end: 20140414
  8. NEUPRO [Suspect]
     Active Substance: ROTIGOTINE
     Indication: RESTLESS LEGS SYNDROME
     Dosage: PATCH
     Route: 061
     Dates: start: 20140408, end: 20140418
  9. SENNOSIDE [Concomitant]
     Active Substance: SENNOSIDES
     Dosage: UNK
     Dates: start: 200511, end: 20140501
  10. DONEPEZIL [Suspect]
     Active Substance: DONEPEZIL
     Indication: PRODUCT USED FOR UNKNOWN INDICATION
     Dosage: 3MG DAILY
     Route: 048
     Dates: start: 20121018
  11. FUROSEMIDE. [Concomitant]
     Active Substance: FUROSEMIDE
     Dosage: 120 MG DAILY DOSE
     Dates: start: 200511, end: 20140414
  12. NIFEDIPINE. [Concomitant]
     Active Substance: NIFEDIPINE
     Dosage: UNK
     Dates: start: 20140218, end: 20140414
  13. TRIAZOLAM. [Suspect]
     Active Substance: TRIAZOLAM
     Indication: PRODUCT USED FOR UNKNOWN INDICATION
     Dosage: 0.25MG DAILY
     Route: 048
     Dates: start: 20121218, end: 20140414
  14. SHAKUYAKUKANZOTO [Concomitant]
     Active Substance: HERBALS
     Dosage: UNK
     Dates: start: 20120315, end: 20140414
  15. CILOSTAZOL. [Concomitant]
     Active Substance: CILOSTAZOL
     Dosage: UNK
     Dates: start: 20140225, end: 20140501
  16. NICERGOLINE [Concomitant]
     Active Substance: NICERGOLINE
     Dosage: UNK
     Dates: start: 20130604, end: 20140414

REACTIONS (2)
  - Aggression [Unknown]
  - Hallucination [Recovered/Resolved]

NARRATIVE: CASE EVENT DATE: 20140413
